FAERS Safety Report 11444452 (Version 8)
Quarter: 2016Q3

REPORT INFORMATION
  Report Type: Report from Study
  Country: CA (occurrence: CA)
  Receive Date: 20150902
  Receipt Date: 20160912
  Transmission Date: 20161109
  Serious: Yes (Death, Hospitalization, Other)
  Sender: FDA-Public Use
  Company Number: CA-ROCHE-1627352

PATIENT
  Age: 54 Year
  Sex: Female

DRUGS (16)
  1. SULFASALAZINE. [Concomitant]
     Active Substance: SULFASALAZINE
  2. NITROGLYCERIN. [Concomitant]
     Active Substance: NITROGLYCERIN
  3. ENDOCET [Concomitant]
     Active Substance: ACETAMINOPHEN\OXYCODONE HYDROCHLORIDE
  4. FUROSEMIDE. [Concomitant]
     Active Substance: FUROSEMIDE
  5. PARIET [Concomitant]
     Active Substance: RABEPRAZOLE SODIUM
  6. ACTEMRA [Suspect]
     Active Substance: TOCILIZUMAB
     Indication: RHEUMATOID ARTHRITIS
     Route: 042
     Dates: start: 20140501, end: 20160120
  7. METOPROLOL. [Concomitant]
     Active Substance: METOPROLOL
  8. PREDNISONE. [Suspect]
     Active Substance: PREDNISONE
     Dosage: FOR PAST 2 MONTHS
     Route: 065
  9. PAMIDRONATE [Concomitant]
     Active Substance: PAMIDRONATE DISODIUM
     Route: 065
  10. SIMVASTATIN. [Concomitant]
     Active Substance: SIMVASTATIN
  11. WARFARIN [Concomitant]
     Active Substance: WARFARIN
  12. DIGOXIN. [Concomitant]
     Active Substance: DIGOXIN
  13. PREDNISONE. [Suspect]
     Active Substance: PREDNISONE
     Indication: PRODUCT USED FOR UNKNOWN INDICATION
     Route: 065
  14. LEFLUNOMIDE. [Concomitant]
     Active Substance: LEFLUNOMIDE
  15. ASA [Concomitant]
     Active Substance: ASPIRIN
  16. RAMIPRIL. [Concomitant]
     Active Substance: RAMIPRIL

REACTIONS (17)
  - Infected skin ulcer [Not Recovered/Not Resolved]
  - Nasopharyngitis [Recovered/Resolved]
  - Gait disturbance [Unknown]
  - Drug effect decreased [Unknown]
  - Death [Fatal]
  - Rash [Unknown]
  - Blood iron decreased [Recovered/Resolved]
  - Skin ulcer [Not Recovered/Not Resolved]
  - Blood cholesterol increased [Recovered/Resolved]
  - Fatigue [Unknown]
  - Ulcer [Unknown]
  - Arthralgia [Unknown]
  - Drug ineffective [Unknown]
  - Fatigue [Not Recovered/Not Resolved]
  - Peripheral swelling [Unknown]
  - Headache [Recovered/Resolved]
  - Pallor [Recovered/Resolved]

NARRATIVE: CASE EVENT DATE: 201506
